FAERS Safety Report 9636282 (Version 1)
Quarter: 2013Q4

REPORT INFORMATION
  Report Type: Report from Study
  Country: GT (occurrence: GT)
  Receive Date: 20131021
  Receipt Date: 20131021
  Transmission Date: 20140711
  Serious: Yes (Death, Hospitalization, Other)
  Sender: FDA-Public Use
  Company Number: GT-ROCHE-1290752

PATIENT
  Sex: Female

DRUGS (1)
  1. BONVIVA [Suspect]
     Indication: OSTEOPOROSIS
     Route: 048
     Dates: start: 20070621, end: 20120616

REACTIONS (4)
  - Cardio-respiratory arrest [Fatal]
  - Hip fracture [Unknown]
  - Renal failure [Unknown]
  - Pneumonia [Unknown]
